FAERS Safety Report 18014205 (Version 2)
Quarter: 2020Q4

REPORT INFORMATION
  Report Type: Spontaneous
  Country: CA (occurrence: CA)
  Receive Date: 20200713
  Receipt Date: 20201030
  Transmission Date: 20210113
  Serious: Yes (Other)
  Sender: FDA-Public Use
  Company Number: CA-PFIZER INC-2020264650

PATIENT
  Age: 5 Year
  Sex: Male

DRUGS (33)
  1. FUROSEMIDE. [Concomitant]
     Active Substance: FUROSEMIDE
  2. GRANISETRON [Concomitant]
     Active Substance: GRANISETRON
  3. NACL [Concomitant]
     Active Substance: SODIUM CHLORIDE
  4. TACROLIMUS. [Concomitant]
     Active Substance: TACROLIMUS
  5. BUSULFAN. [Suspect]
     Active Substance: BUSULFAN
     Indication: BONE MARROW TRANSPLANT
  6. HEPARIN SODIUM, PORCINE [Concomitant]
     Active Substance: HEPARIN SODIUM
  7. SMOFLIPID [Concomitant]
     Active Substance: FISH OIL\MEDIUM-CHAIN TRIGLYCERIDES\OLIVE OIL\SOYBEAN OIL
  8. MEROPENEM. [Concomitant]
     Active Substance: MEROPENEM
  9. URSODIOL. [Concomitant]
     Active Substance: URSODIOL
  10. ALDACTAZIDE [Concomitant]
     Active Substance: HYDROCHLOROTHIAZIDE\SPIRONOLACTONE
  11. CETIRIZINE [Concomitant]
     Active Substance: CETIRIZINE HYDROCHLORIDE
  12. ETOPOSIDE. [Concomitant]
     Active Substance: ETOPOSIDE
  13. FILGRASTIM [Concomitant]
     Active Substance: FILGRASTIM
  14. HYDROCORTISONE. [Concomitant]
     Active Substance: HYDROCORTISONE
  15. MYCOPHENOLATE MOFETIL. [Concomitant]
     Active Substance: MYCOPHENOLATE MOFETIL
  16. CYCLOPHOSPHAMIDE. [Concomitant]
     Active Substance: CYCLOPHOSPHAMIDE
  17. DEFIBROTIDE [Concomitant]
     Active Substance: DEFIBROTIDE (BOVINE)
  18. LIDOCAINE. [Concomitant]
     Active Substance: LIDOCAINE
  19. LORAZEPAM. [Concomitant]
     Active Substance: LORAZEPAM
  20. SODIUM BICARBONATE. [Concomitant]
     Active Substance: SODIUM BICARBONATE
  21. BUSULFAN. [Suspect]
     Active Substance: BUSULFAN
     Indication: CHEMOTHERAPY
  22. AMIKACIN. [Concomitant]
     Active Substance: AMIKACIN
  23. DAUNORUBICIN HYDROCHLORIDE. [Concomitant]
     Active Substance: DAUNORUBICIN HYDROCHLORIDE
  24. ZINECARD [Suspect]
     Active Substance: DEXRAZOXANE HYDROCHLORIDE
  25. CASPOFUNGIN [Concomitant]
     Active Substance: CASPOFUNGIN
  26. CYTARABINE. [Concomitant]
     Active Substance: CYTARABINE
  27. GRAVOL [Concomitant]
     Active Substance: DIMENHYDRINATE
  28. MITOXANTRONE [Concomitant]
     Active Substance: MITOXANTRONE HYDROCHLORIDE
  29. PANTOPRAZOLE [Concomitant]
     Active Substance: PANTOPRAZOLE
  30. ACETAMINOPHEN. [Concomitant]
     Active Substance: ACETAMINOPHEN
  31. DIPHENHYDRAMINE HCL [Concomitant]
     Active Substance: DIPHENHYDRAMINE HYDROCHLORIDE
  32. HYDROMORPHONE [Concomitant]
     Active Substance: HYDROMORPHONE
     Dosage: UNK
  33. NABILONE [Concomitant]
     Active Substance: NABILONE

REACTIONS (3)
  - Product use issue [Unknown]
  - Venoocclusive disease [Unknown]
  - Off label use [Unknown]
